FAERS Safety Report 8781225 (Version 2)
Quarter: 2012Q4

REPORT INFORMATION
  Report Type: 
  Country: NL (occurrence: NL)
  Receive Date: 20120913
  Receipt Date: 20121129
  Transmission Date: 20130627
  Serious: Yes (Hospitalization)
  Sender: FDA-Public Use
  Company Number: NL-009507513-1208NLD012006

PATIENT
  Age: 37 Year
  Sex: Female

DRUGS (7)
  1. ISENTRESS [Suspect]
     Indication: HIV INFECTION
     Dosage: UNK
     Route: 048
     Dates: start: 2010
  2. LAMIVUDINE (+) ZIDOVUDINE [Suspect]
     Indication: HIV INFECTION
     Dosage: UNK
     Dates: start: 20100202
  3. LOPINAVIR (+) RITONAVIR [Suspect]
     Indication: HIV INFECTION
     Dosage: UNK
     Dates: start: 20100202
  4. TENOFOVIR [Suspect]
     Indication: HIV INFECTION
     Dosage: UNK
     Dates: start: 2010
  5. PREDNISONE [Concomitant]
     Indication: IMMUNE RECONSTITUTION INFLAMMATORY SYNDROME
     Dosage: 30 mg, UNK
  6. PREDNISONE [Concomitant]
     Dosage: 5 mg, qd
  7. PREDNISONE [Concomitant]
     Dosage: 20 mg, qd
     Dates: start: 20111029

REACTIONS (1)
  - Autoimmune thyroiditis [Not Recovered/Not Resolved]
